FAERS Safety Report 11773732 (Version 1)
Quarter: 2015Q4

REPORT INFORMATION
  Report Type: Report from Study
  Country: HU (occurrence: HU)
  Receive Date: 20151124
  Receipt Date: 20151124
  Transmission Date: 20160304
  Serious: Yes (Other)
  Sender: FDA-Public Use
  Company Number: HU-BAYER-2015-184716

PATIENT
  Age: 70 Year
  Sex: Male
  Weight: 98 kg

DRUGS (6)
  1. DIAPREL [Concomitant]
     Active Substance: GLICLAZIDE
     Dosage: ONE TABLET
  2. TENAXUM [Concomitant]
     Active Substance: RILMENIDINE
     Dosage: IN EVENING
  3. RYTMONORM [Concomitant]
     Active Substance: PROPAFENONE
  4. COVERCARD [Concomitant]
     Active Substance: AMLODIPINE BESYLATE\PERINDOPRIL ARGININE
     Dosage: 10/10 MG IN MORNING
  5. NEXAVAR [Suspect]
     Active Substance: SORAFENIB
     Indication: HEPATOCELLULAR CARCINOMA
     Dosage: DAILY DOSE 800 MG
     Route: 048
     Dates: start: 20150428, end: 20150925
  6. METOPROLOL [Concomitant]
     Active Substance: METOPROLOL

REACTIONS (14)
  - Fatigue [Recovered/Resolved]
  - Eructation [Recovered/Resolved]
  - Palmar-plantar erythrodysaesthesia syndrome [Recovered/Resolved]
  - Diarrhoea [Recovered/Resolved]
  - Diarrhoea [Not Recovered/Not Resolved]
  - Abdominal pain upper [Recovered/Resolved]
  - Hypertension [Recovered/Resolved]
  - Dysphonia [Recovered/Resolved]
  - Decreased appetite [Recovered/Resolved]
  - Ageusia [Recovered/Resolved]
  - Skin exfoliation [Recovered/Resolved]
  - Hepatocellular carcinoma [Not Recovered/Not Resolved]
  - Nausea [Recovered/Resolved]
  - Dyspepsia [Recovered/Resolved]

NARRATIVE: CASE EVENT DATE: 201505
